FAERS Safety Report 25389718 (Version 1)
Quarter: 2025Q2

REPORT INFORMATION
  Report Type: Report from Study
  Country: UA (occurrence: UA)
  Receive Date: 20250603
  Receipt Date: 20250603
  Transmission Date: 20250716
  Serious: Yes (Other)
  Sender: AUROBINDO
  Company Number: UA-AUROBINDO-AUR-APL-2025-027953

PATIENT
  Age: 56 Year

DRUGS (1)
  1. AMOXICILLIN\CLAVULANATE POTASSIUM [Suspect]
     Active Substance: AMOXICILLIN\CLAVULANATE POTASSIUM
     Indication: Antibiotic therapy
     Dosage: 1000 MILLIGRAM, TWO TIMES A DAY
     Route: 042
     Dates: start: 20240905

REACTIONS (1)
  - Pneumonia [Unknown]
